FAERS Safety Report 14536678 (Version 1)
Quarter: 2018Q1

REPORT INFORMATION
  Report Type: Spontaneous
  Country: US (occurrence: US)
  Receive Date: 20180215
  Receipt Date: 20180215
  Transmission Date: 20180509
  Serious: Yes (Hospitalization)
  Sender: FDA-Public Use
  Company Number: None

PATIENT
  Age: 72 Year
  Sex: Male
  Weight: 91.1 kg

DRUGS (11)
  1. MIDAZOLAM [Suspect]
     Active Substance: MIDAZOLAM HYDROCHLORIDE
     Indication: CATHETERISATION CARDIAC
     Route: 042
  2. PLETAL [Concomitant]
     Active Substance: CILOSTAZOL
  3. VITD [Concomitant]
  4. APIXIBAN [Concomitant]
     Active Substance: APIXABAN
  5. ALBUTEROL. [Concomitant]
     Active Substance: ALBUTEROL
  6. PULMICORT TURBUHALER [Concomitant]
     Active Substance: BUDESONIDE
  7. FENTANYL. [Suspect]
     Active Substance: FENTANYL
     Indication: CATHETERISATION CARDIAC
     Route: 042
  8. ROCALTROL [Concomitant]
     Active Substance: CALCITRIOL
  9. TIAZAC [Concomitant]
     Active Substance: DILTIAZEM HYDROCHLORIDE
  10. CYMBALTA [Concomitant]
     Active Substance: DULOXETINE HYDROCHLORIDE
  11. ASA [Concomitant]
     Active Substance: ASPIRIN

REACTIONS (3)
  - Respiratory failure [None]
  - Respiratory acidosis [None]
  - Somnolence [None]

NARRATIVE: CASE EVENT DATE: 20170509
